FAERS Safety Report 4919092-6 (Version None)
Quarter: 2006Q1

REPORT INFORMATION
  Report Type: 
  Country: None (occurrence: None)
  Receive Date: 20060222
  Receipt Date: 20050829
  Transmission Date: 20060701
  Serious: Yes (Hospitalization, Other)
  Sender: FDA-Public Use
  Company Number: CH-BRISTOL-MYERS SQUIBB COMPANY-13286380

PATIENT
  Age: 21 Year
  Sex: Female

DRUGS (2)
  1. TRITTICO [Suspect]
     Indication: DEPRESSION
     Dosage: PRESCRIBED DOSE: 50 MG DAILY FROM APRIL 2005 TO 03-JUL-2005
     Route: 048
     Dates: start: 20050703, end: 20050703
  2. VOLTAREN [Suspect]
     Dosage: PRESCRIBED DOSE 50 MG DAILY
     Route: 048
     Dates: start: 20050703, end: 20050703

REACTIONS (2)
  - OVERDOSE [None]
  - SUICIDE ATTEMPT [None]
